FAERS Safety Report 7228779-4 (Version None)
Quarter: 2011Q1

REPORT INFORMATION
  Report Type: 
  Country: None (occurrence: None)
  Receive Date: 20110117
  Receipt Date: 20110110
  Transmission Date: 20110831
  Serious: No
  Sender: FDA-Public Use
  Company Number: US-BIOGENIDEC-2011BI001397

PATIENT
  Age: 40 Year
  Sex: Female

DRUGS (2)
  1. AVONEX [Suspect]
     Indication: MULTIPLE SCLEROSIS
     Route: 030
     Dates: start: 20100301, end: 20110108
  2. AVONEX [Suspect]
     Route: 030
     Dates: start: 20110108

REACTIONS (4)
  - SENSORY DISTURBANCE [None]
  - MUSCULAR WEAKNESS [None]
  - CRYING [None]
  - MYALGIA [None]
